FAERS Safety Report 22173943 (Version 1)
Quarter: 2023Q2

REPORT INFORMATION
  Report Type: Spontaneous
  Country: NL (occurrence: NL)
  Receive Date: 20230404
  Receipt Date: 20230404
  Transmission Date: 20230721
  Serious: Yes (Hospitalization)
  Sender: FDA-Public Use
  Company Number: None

PATIENT
  Sex: Male
  Weight: 70 kg

DRUGS (6)
  1. UPADACITINIB [Suspect]
     Active Substance: UPADACITINIB
     Indication: Ankylosing spondylitis
     Dosage: 1X PER DAY 1 PIECE, MGA RINVOQ TABLET MVA 15MG
     Dates: start: 20221220, end: 20230312
  2. POLYETHYLENE GLYCOLS [Concomitant]
     Active Substance: POLYETHYLENE GLYCOLS
     Indication: Product used for unknown indication
     Dosage: POWDER FOR DRINK, BRAND NAME NOT SPECIFIED, SALTS PDR V BEVERAGE (MOVIC/MOLAX/LAXT/GEN)
  3. OMEPRAZOLE [Concomitant]
     Active Substance: OMEPRAZOLE
     Indication: Product used for unknown indication
     Dosage: CAPSULE MSR, BRAND NAME NOT SPECIFIED
  4. LIDOCAINE VASELINECREME [Concomitant]
     Indication: Product used for unknown indication
     Dosage: DOSAGE: 30 MG/G RECTAL CREAM, 30 MG/G (MILLIGRAM PER GRAM), 3%?LIDOCAINE VASELINECREME FNA
  5. AMOXICILLIN [Concomitant]
     Active Substance: AMOXICILLIN
     Indication: Product used for unknown indication
     Dosage: CAPSULE, 500 MG (MILLIGRAM),  BRAND NAME NOT SPECIFIED
  6. METOCLOPRAMIDE INFVLST [Concomitant]
     Indication: Product used for unknown indication
     Dosage: DOSAGE: 5 MG/ML INFUSION FLUID, 5 MG/ML (MILLIGRAM PER MILLILITER)?BRAND NAME NOT SPECIFIED, 5MG/...

REACTIONS (3)
  - Anal fistula [Recovering/Resolving]
  - Anal inflammation [Recovering/Resolving]
  - Anal abscess [Recovering/Resolving]
